FAERS Safety Report 8248295-0 (Version None)
Quarter: 2012Q1

REPORT INFORMATION
  Report Type: 
  Country: None (occurrence: None)
  Receive Date: 20120330
  Receipt Date: 20120328
  Transmission Date: 20120608
  Serious: Yes (Other)
  Sender: FDA-Public Use
  Company Number: TR-ABBOTT-12P-161-0919560-00

PATIENT
  Age: 49 Year
  Sex: Female
  Weight: 45 kg

DRUGS (1)
  1. HUMIRA [Suspect]
     Indication: ANKYLOSING SPONDYLITIS
     Route: 058
     Dates: start: 20110510, end: 20120322

REACTIONS (5)
  - LOSS OF CONSCIOUSNESS [None]
  - HYPERHIDROSIS [None]
  - VISUAL IMPAIRMENT [None]
  - MOBILITY DECREASED [None]
  - MITRAL VALVE CALCIFICATION [None]
